FAERS Safety Report 7757537-7 (Version None)
Quarter: 2011Q3

REPORT INFORMATION
  Report Type: 
  Country: None (occurrence: None)
  Receive Date: 20110916
  Receipt Date: 20110912
  Transmission Date: 20111222
  Serious: Yes (Hospitalization, Other)
  Sender: FDA-Public Use
  Company Number: BR-BAYER-2011-067481

PATIENT
  Sex: Female

DRUGS (12)
  1. ANALGESICS [Concomitant]
     Indication: OSTEOPOROSIS
  2. LEVOTHYROXINE SODIUM [Concomitant]
     Indication: HYPOTHYROIDISM
     Dosage: 125 ?G, QD
     Route: 048
     Dates: start: 20010101
  3. CELEBREX [Concomitant]
     Indication: BONE OPERATION
  4. FLUOXETINE [Concomitant]
     Indication: AFFECT LABILITY
  5. CALCIUM CARBONATE [Concomitant]
     Indication: OSTEOPENIA
     Dosage: 1 DF, QD
     Route: 048
     Dates: start: 19910101
  6. CELEBREX [Concomitant]
     Indication: ANTIINFLAMMATORY THERAPY
     Dosage: 1 DF, QD
     Route: 048
     Dates: start: 20110625
  7. XARELTO [Suspect]
     Indication: HIP FRACTURE
     Dosage: 10 MG, BID
     Route: 048
     Dates: start: 20110701, end: 20110101
  8. CIPROFLOXACIN [Suspect]
     Indication: INFECTION PROPHYLAXIS
     Dosage: 1 DF, BID
     Route: 048
     Dates: start: 20110701, end: 20110714
  9. FLUOXETINE [Concomitant]
     Indication: CRYING
     Dosage: 20 MG, QD
     Route: 048
     Dates: start: 20010101
  10. XARELTO [Suspect]
     Indication: ORTHOPEDIC PROCEDURE
  11. FLUOXETINE [Concomitant]
     Indication: ANTIDEPRESSANT THERAPY
  12. ALENDRONATE SODIUM [Concomitant]
     Indication: OSTEOPENIA
     Dosage: 1 DF, OW
     Route: 048
     Dates: start: 19910101

REACTIONS (3)
  - POST PROCEDURAL HAEMORRHAGE [None]
  - POST PROCEDURAL INFECTION [None]
  - IMPAIRED HEALING [None]
